FAERS Safety Report 10098454 (Version 2)
Quarter: 2014Q2

REPORT INFORMATION
  Report Type: Spontaneous
  Country: DE (occurrence: None)
  Receive Date: 20140421
  Receipt Date: 20140506
  Transmission Date: 20141212
  Serious: Yes (Hospitalization)
  Sender: FDA-Public Use
  Company Number: 2014DE003171

PATIENT
  Age: 71 Year
  Sex: Male
  Weight: 79 kg

DRUGS (7)
  1. PONATINIB [Suspect]
     Indication: CHRONIC MYELOID LEUKAEMIA
     Route: 048
     Dates: start: 20110721
  2. LOSARTAN (LOSARTAN POTASSIUM) [Concomitant]
  3. PANTOZOL (PANTOPRAZOLE SODIUM SESQUIHYDRATE) [Concomitant]
  4. ASS (ACETYLSALICYLIC ACIDI) [Concomitant]
  5. TORASEMID (TORASEMIDE) [Concomitant]
  6. AMLODIPIN (AMLODIPINE MALEATE) [Concomitant]
  7. IBUPROFEN (IBUPROFEN SOIDUM) [Concomitant]

REACTIONS (1)
  - Peripheral artery stenosis [None]
